FAERS Safety Report 5717899-9 (Version None)
Quarter: 2008Q2

REPORT INFORMATION
  Report Type: 
  Country: None (occurrence: None)
  Receive Date: 20080425
  Receipt Date: 20080314
  Transmission Date: 20081010
  Serious: No
  Sender: FDA-Public Use
  Company Number: US-ABBOTT-08P-163-0442784-00

PATIENT
  Sex: Female
  Weight: 51.756 kg

DRUGS (1)
  1. ERYTHROMYCIN BASE [Suspect]
     Indication: INFECTION
     Route: 048
     Dates: start: 19880101, end: 19880101

REACTIONS (2)
  - MALAISE [None]
  - RESPIRATORY DISORDER [None]
